FAERS Safety Report 5931015-X (Version None)
Quarter: 2008Q4

REPORT INFORMATION
  Report Type: 
  Country: None (occurrence: None)
  Receive Date: 20081027
  Receipt Date: 20081016
  Transmission Date: 20090506
  Serious: Yes (Other)
  Sender: FDA-Public Use
  Company Number: US-AMGEN-US309690

PATIENT
  Sex: Female

DRUGS (5)
  1. ENBREL [Suspect]
     Indication: RHEUMATOID ARTHRITIS
     Route: 058
     Dates: start: 20030925, end: 20080101
  2. ENBREL [Suspect]
     Route: 058
     Dates: start: 20050501, end: 20080901
  3. METHOTREXATE [Concomitant]
     Route: 065
     Dates: end: 20040101
  4. VIOXX [Concomitant]
     Route: 048
     Dates: end: 20040101
  5. PREDNISONE TAB [Concomitant]
     Route: 048

REACTIONS (2)
  - PRE-ECLAMPSIA [None]
  - PREMATURE LABOUR [None]
